FAERS Safety Report 4942364-6 (Version None)
Quarter: 2006Q1

REPORT INFORMATION
  Report Type: 
  Country: None (occurrence: None)
  Receive Date: 20060313
  Receipt Date: 20060112
  Transmission Date: 20060701
  Serious: Yes (Other)
  Sender: FDA-Public Use
  Company Number: US-GLAXOSMITHKLINE-A0588928A

PATIENT
  Age: 55 Year
  Sex: Female

DRUGS (2)
  1. EQUATE NICOTINE GUM 2MG [Suspect]
     Dosage: 2MG UNKNOWN
     Dates: start: 20050101
  2. NICODERM CQ [Suspect]
     Dosage: 21MG UNKNOWN

REACTIONS (5)
  - DRUG ABUSER [None]
  - DRUG INEFFECTIVE [None]
  - NIGHTMARE [None]
  - PHARMACEUTICAL PRODUCT COMPLAINT [None]
  - RETCHING [None]
